FAERS Safety Report 14368224 (Version 8)
Quarter: 2019Q3

REPORT INFORMATION
  Report Type: Spontaneous
  Country: CA (occurrence: CA)
  Receive Date: 20180109
  Receipt Date: 20190725
  Transmission Date: 20191004
  Serious: Yes (Hospitalization, Other)
  Sender: FDA-Public Use
  Company Number: CA-PFIZER INC-2017498858

PATIENT
  Age: 44 Year
  Sex: Female

DRUGS (6)
  1. METHOTREXATE SODIUM. [Suspect]
     Active Substance: METHOTREXATE SODIUM
     Indication: RHEUMATOID ARTHRITIS
     Dosage: 20 MG, UNK
     Route: 048
     Dates: start: 201603
  2. ADVIL [IBUPROFEN] [Concomitant]
     Active Substance: IBUPROFEN
     Dosage: UNK
  3. MORPHINE [Concomitant]
     Active Substance: MORPHINE
     Dosage: UNK
  4. XELJANZ [Suspect]
     Active Substance: TOFACITINIB CITRATE
     Dosage: 5 MG, 2X/DAY
     Route: 048
     Dates: start: 20181204, end: 20190709
  5. CELEBREX [Concomitant]
     Active Substance: CELECOXIB
     Dosage: UNK
  6. XELJANZ [Suspect]
     Active Substance: TOFACITINIB CITRATE
     Indication: RHEUMATOID ARTHRITIS
     Dosage: 5 MG, 2X/DAY
     Route: 048
     Dates: start: 20161223, end: 20181109

REACTIONS (24)
  - Muscle rupture [Not Recovered/Not Resolved]
  - Oropharyngeal pain [Unknown]
  - Fatigue [Not Recovered/Not Resolved]
  - Hypersomnia [Not Recovered/Not Resolved]
  - Drug hypersensitivity [Unknown]
  - Condition aggravated [Not Recovered/Not Resolved]
  - Product dose omission [Unknown]
  - Latent tuberculosis [Not Recovered/Not Resolved]
  - Skin warm [Not Recovered/Not Resolved]
  - Sepsis [Unknown]
  - Nasopharyngitis [Unknown]
  - Bone pain [Unknown]
  - Nodule [Unknown]
  - Pain in extremity [Unknown]
  - Back disorder [Unknown]
  - Intentional product misuse [Unknown]
  - Joint effusion [Unknown]
  - Muscle disorder [Unknown]
  - Laboratory test abnormal [Unknown]
  - Foot deformity [Not Recovered/Not Resolved]
  - Back pain [Unknown]
  - Eye discharge [Unknown]
  - Localised infection [Recovering/Resolving]
  - Acne [Unknown]

NARRATIVE: CASE EVENT DATE: 201901
